FAERS Safety Report 7831640-5 (Version None)
Quarter: 2011Q4

REPORT INFORMATION
  Report Type: 
  Country: None (occurrence: None)
  Receive Date: 20111021
  Receipt Date: 20111010
  Transmission Date: 20120403
  Serious: Yes (Death, Hospitalization)
  Sender: FDA-Public Use
  Company Number: CZ-ROCHE-1004460

PATIENT
  Sex: Male
  Weight: 80 kg

DRUGS (8)
  1. VEROSPIRON [Concomitant]
     Indication: HYPERTENSION
  2. CONCOR [Concomitant]
     Indication: HYPERTENSION
  3. ATORVASTATIN CALCIUM [Concomitant]
     Indication: HYPERCHOLESTEROLAEMIA
  4. RAMIPRIL [Concomitant]
     Indication: CARDIAC FAILURE CONGESTIVE
  5. ZOLOFT [Concomitant]
     Indication: DEPRESSION
  6. ANOPYRIN [Concomitant]
     Indication: CEREBROVASCULAR ACCIDENT
  7. ACTIVASE [Suspect]
     Indication: CEREBROVASCULAR ACCIDENT
     Route: 042
     Dates: start: 20110916, end: 20110916
  8. FURON [Concomitant]
     Indication: HYPERTENSION

REACTIONS (4)
  - PULMONARY OEDEMA [None]
  - GINGIVAL BLEEDING [None]
  - CARDIAC DISORDER [None]
  - HAEMATURIA [None]
